FAERS Safety Report 4855391-4 (Version None)
Quarter: 2005Q4

REPORT INFORMATION
  Report Type: 
  Country: None (occurrence: None)
  Receive Date: 20051125
  Receipt Date: 20050325
  Transmission Date: 20060501
  Serious: Yes (Other)
  Sender: FDA-Public Use
  Company Number: US-JNJFOC-20050106907

PATIENT
  Age: 34 Year
  Sex: Female

DRUGS (8)
  1. LEVAQUIN [Suspect]
     Indication: PNEUMONIA ASPIRATION
     Dosage: 500 MG, IN 1 DAY
  2. TEGRETOL [Suspect]
     Indication: DRUG USE FOR UNKNOWN INDICATION
  3. LAMICTAL [Concomitant]
  4. PAXIL [Concomitant]
  5. ATIVAN [Concomitant]
  6. IRON [Concomitant]
  7. PEPCID [Concomitant]
  8. VITAMINS WITH IRON (MULTIVITAMINS AND IRON) [Concomitant]

REACTIONS (1)
  - LEUKOPENIA [None]
